FAERS Safety Report 6766468-0 (Version None)
Quarter: 2010Q2

REPORT INFORMATION
  Report Type: 
  Country: None (occurrence: None)
  Receive Date: 20100611
  Receipt Date: 20100602
  Transmission Date: 20101027
  Serious: Yes (Hospitalization)
  Sender: FDA-Public Use
  Company Number: GXKR2010GB06180

PATIENT
  Age: 59 Year
  Sex: Male

DRUGS (18)
  1. SIMVASTATIN (NGX) [Suspect]
     Dosage: 20 MG
     Route: 048
  2. FUSIDIC ACID [Interacting]
     Indication: INFECTION
     Dosage: 500 MG, TID
     Route: 065
  3. GLICLAZIDE [Concomitant]
     Indication: DIABETES MELLITUS
     Dosage: 80 MG, BID
     Route: 065
  4. GENTAMICIN [Concomitant]
     Route: 065
  5. CLARITHROMYCIN [Concomitant]
     Dosage: 250 MG, BID
     Route: 065
  6. CEFTRIAXONE [Concomitant]
     Dosage: 1 G/DAY
     Route: 065
  7. FLOXACILLIN SODIUM [Concomitant]
     Dosage: 500 MG, QID
     Route: 065
  8. LANSOPRAZOLE [Concomitant]
     Dosage: 30 MG, UNK
     Route: 065
  9. ALLOPURINOL [Concomitant]
     Dosage: 100 MG, UNK
     Route: 065
  10. ATENOLOL [Concomitant]
     Dosage: 50 MG, UNK
     Route: 065
  11. CLOPIDOGREL [Concomitant]
     Dosage: 75 MG/DAY
     Route: 065
  12. DIPYRIDAMOLE [Concomitant]
     Dosage: 200 MG, BID
     Route: 065
  13. CALCICHEW [Concomitant]
     Dosage: 2 DF, TID
     Route: 065
  14. ALFACALCIDOL [Concomitant]
     Dosage: 1 UG, UNK
     Route: 065
  15. FOLIC ACID [Concomitant]
     Dosage: 5 MG, UNK
     Route: 065
  16. OROVITE [Concomitant]
     Dosage: 1 DF, UNK
     Route: 065
  17. EPOGEN [Concomitant]
     Dosage: 3000 U, UNK
     Route: 065
  18. IRON [Concomitant]
     Dosage: 50 MG, WEEKLY
     Route: 065

REACTIONS (4)
  - DRUG INTERACTION [None]
  - HYPOREFLEXIA [None]
  - PARAPARESIS [None]
  - RHABDOMYOLYSIS [None]
